FAERS Safety Report 23721532 (Version 1)
Quarter: 2024Q2

REPORT INFORMATION
  Report Type: Spontaneous
  Country: ES (occurrence: ES)
  Receive Date: 20240409
  Receipt Date: 20240409
  Transmission Date: 20240715
  Serious: Yes (Other)
  Sender: FDA-Public Use
  Company Number: ES-AEMPS-1472993

PATIENT
  Age: 31 Year
  Sex: Male

DRUGS (2)
  1. LEVETIRACETAM [Suspect]
     Active Substance: LEVETIRACETAM
     Indication: Epilepsy
     Dosage: 500 MILLIGRAM, BID
     Route: 048
     Dates: start: 20231231, end: 20240103
  2. LEVETIRACETAM [Suspect]
     Active Substance: LEVETIRACETAM
     Dosage: 1500 MILLIGRAM, BID
     Route: 048
     Dates: start: 20231230, end: 20231231

REACTIONS (1)
  - Rhabdomyolysis [Recovering/Resolving]

NARRATIVE: CASE EVENT DATE: 20231230
